FAERS Safety Report 23950320 (Version 1)
Quarter: 2024Q2

REPORT INFORMATION
  Report Type: Spontaneous
  Country: US (occurrence: US)
  Receive Date: 20240607
  Receipt Date: 20240607
  Transmission Date: 20240716
  Serious: No
  Sender: FDA-Public Use
  Company Number: US-ALVOGEN-2024094471

PATIENT
  Sex: Male

DRUGS (1)
  1. BUPRENORPHINE [Suspect]
     Active Substance: BUPRENORPHINE
     Indication: Pain management
     Dosage: 20 MCG/HR - 1 PATCH/WEEK
     Route: 062

REACTIONS (3)
  - Drug effect less than expected [Unknown]
  - Device malfunction [Unknown]
  - Device adhesion issue [Unknown]
